FAERS Safety Report 5822297-3 (Version None)
Quarter: 2008Q3

REPORT INFORMATION
  Report Type: 
  Country: None (occurrence: None)
  Receive Date: 20080725
  Receipt Date: 20080415
  Transmission Date: 20090109
  Serious: No
  Sender: FDA-Public Use
  Company Number: US-AMGEN-KDL275080

PATIENT
  Sex: Male
  Weight: 73.5 kg

DRUGS (10)
  1. PROCRIT [Suspect]
     Indication: RENAL FAILURE CHRONIC
  2. CRESTOR [Concomitant]
  3. ISOSORBIDE DINITRATE [Concomitant]
  4. CILOSTAZOL [Concomitant]
  5. FUROSEMIDE [Concomitant]
  6. SINGULAIR [Concomitant]
  7. AZMACORT [Concomitant]
  8. WARFARIN SODIUM [Concomitant]
  9. CALCIUM WITH VITAMIN D [Concomitant]
  10. IRON [Concomitant]

REACTIONS (5)
  - GOUT [None]
  - OEDEMA PERIPHERAL [None]
  - PAIN IN EXTREMITY [None]
  - PRURITUS [None]
  - SKIN TIGHTNESS [None]
